FAERS Safety Report 12518048 (Version 1)
Quarter: 2016Q2

REPORT INFORMATION
  Report Type: Spontaneous
  Country: US (occurrence: US)
  Receive Date: 20160630
  Receipt Date: 20160630
  Transmission Date: 20160815
  Serious: No
  Sender: FDA-Public Use
  Company Number: US-TEVA-668747USA

PATIENT
  Sex: Female

DRUGS (3)
  1. SENOKOT [Concomitant]
     Active Substance: SENNOSIDES
     Route: 065
  2. COPAXONE [Suspect]
     Active Substance: GLATIRAMER ACETATE
     Indication: MULTIPLE SCLEROSIS
     Route: 058
     Dates: start: 201603
  3. GAS-X [Concomitant]
     Active Substance: DIMETHICONE
     Route: 065

REACTIONS (1)
  - Injection site reaction [Not Recovered/Not Resolved]
